FAERS Safety Report 18623531 (Version 1)
Quarter: 2020Q4

REPORT INFORMATION
  Report Type: Spontaneous
  Country: US (occurrence: US)
  Receive Date: 20201216
  Receipt Date: 20201216
  Transmission Date: 20210114
  Serious: No
  Sender: FDA-Public Use
  Company Number: US-DSJP-DSU-2020-138707

PATIENT
  Sex: Female

DRUGS (3)
  1. TURALIO [Suspect]
     Active Substance: PEXIDARTINIB HYDROCHLORIDE
     Indication: GIANT CELL TUMOUR OF TENDON SHEATH
     Dosage: 2 DF, BID
     Route: 048
     Dates: start: 201910, end: 202009
  2. TURALIO [Suspect]
     Active Substance: PEXIDARTINIB HYDROCHLORIDE
     Dosage: 1 DF, BID
     Route: 048
     Dates: start: 202009
  3. NORETHINDRONE                      /00044901/ [Suspect]
     Active Substance: NORETHINDRONE
     Indication: HAEMORRHAGE
     Dosage: 5 MG, QD
     Route: 048
     Dates: end: 202002

REACTIONS (10)
  - Oedema [Unknown]
  - Chills [Unknown]
  - Drug interaction [Unknown]
  - Fatigue [Unknown]
  - Off label use [Not Recovered/Not Resolved]
  - Hair colour changes [Unknown]
  - Pyrexia [Unknown]
  - Migraine [Unknown]
  - Pallor [Unknown]
  - Blood pressure increased [Unknown]

NARRATIVE: CASE EVENT DATE: 201911
